FAERS Safety Report 13852840 (Version 1)
Quarter: 2017Q3

REPORT INFORMATION
  Report Type: Spontaneous
  Country: US (occurrence: US)
  Receive Date: 20170810
  Receipt Date: 20170810
  Transmission Date: 20171127
  Serious: No
  Sender: FDA-Public Use
  Company Number: US-BAYER-2017-152820

PATIENT
  Age: 69 Year
  Sex: Female
  Weight: 72.97 kg

DRUGS (1)
  1. MIRALAX [Suspect]
     Active Substance: POLYETHYLENE GLYCOL 3350
     Indication: COLONOSCOPY
     Dosage: 238 G IN 64 OZ GATORADE DOSE
     Route: 048
     Dates: start: 2013

REACTIONS (5)
  - Wrong technique in product usage process [Unknown]
  - Inappropriate prescribing [Unknown]
  - Off label use [Unknown]
  - Wrong technique in product usage process [None]
  - Product use in unapproved indication [Unknown]

NARRATIVE: CASE EVENT DATE: 20170621
